FAERS Safety Report 8941499 (Version 2)
Quarter: 2013Q1

REPORT INFORMATION
  Report Type: Spontaneous
  Country: FR (occurrence: FR)
  Receive Date: 20121203
  Receipt Date: 20130107
  Transmission Date: 20140127
  Serious: Yes (Death, Hospitalization, Other)
  Sender: FDA-Public Use
  Company Number: FR-ASTRAZENECA-2012SE89173

PATIENT
  Age: 21881 Day
  Sex: Female

DRUGS (12)
  1. XEROQUEL [Suspect]
     Route: 048
     Dates: start: 20120920, end: 20120927
  2. XEROQUEL [Suspect]
     Route: 048
     Dates: start: 20121002, end: 20121010
  3. SPIRAMYCIN [Suspect]
     Indication: LUNG DISORDER
     Dosage: EG 3 M.IU, ONE DF, THREE TIMES PER DAY
     Route: 048
     Dates: start: 20120929, end: 20121008
  4. LEPTICUR [Concomitant]
     Dates: end: 20120927
  5. LEPTICUR [Concomitant]
     Dates: start: 20121002
  6. TERCIAN [Concomitant]
     Dates: end: 20120927
  7. TERCIAN [Concomitant]
     Dates: start: 20121002
  8. EUPANTOL [Concomitant]
  9. METFORMIN [Concomitant]
  10. THERALEN [Concomitant]
  11. HEPTAMYL [Concomitant]
  12. CEFTRIAXONE [Concomitant]
     Indication: LUNG DISORDER
     Dates: start: 20120927

REACTIONS (4)
  - Respiratory distress [Fatal]
  - Shock [Fatal]
  - Cholestasis [Recovered/Resolved]
  - Pneumonia klebsiella [Unknown]
